FAERS Safety Report 7493182-9 (Version None)
Quarter: 2011Q2

REPORT INFORMATION
  Report Type: 
  Country: None (occurrence: None)
  Receive Date: 20110519
  Receipt Date: 20110519
  Transmission Date: 20111010
  Serious: Yes (Other)
  Sender: FDA-Public Use
  Company Number: None

PATIENT
  Age: 56 Year
  Sex: Female
  Weight: 68.0396 kg

DRUGS (1)
  1. ZOLPIDEM [Suspect]
     Indication: FOOT OPERATION
     Dosage: 10 MGS NIGHTLY PO
     Route: 048
     Dates: start: 20090318, end: 20110518

REACTIONS (5)
  - DIZZINESS [None]
  - DISTURBANCE IN ATTENTION [None]
  - FAMILY STRESS [None]
  - MEMORY IMPAIRMENT [None]
  - DEPRESSION [None]
